FAERS Safety Report 9951096 (Version 2)
Quarter: 2014Q1

REPORT INFORMATION
  Report Type: Report from Study
  Country: US (occurrence: US)
  Receive Date: 20140304
  Receipt Date: 20140304
  Transmission Date: 20141002
  Serious: Yes (Hospitalization, Other)
  Sender: FDA-Public Use
  Company Number: US-ABBVIE-13P-163-1043617-00

PATIENT
  Age: 39 Year
  Sex: Female
  Weight: 79.45 kg

DRUGS (13)
  1. HUMIRA [Suspect]
     Indication: CROHN^S DISEASE
     Dates: start: 20121207, end: 20121207
  2. HUMIRA [Suspect]
     Dates: start: 20121221, end: 20121221
  3. HUMIRA [Suspect]
     Dates: start: 20130104, end: 20130118
  4. HUMIRA [Suspect]
     Dates: start: 20130222, end: 20130222
  5. HUMIRA [Suspect]
     Dates: start: 20130315
  6. ASACOL [Concomitant]
     Indication: CROHN^S DISEASE
     Route: 048
  7. ENTOCORT [Concomitant]
     Indication: CROHN^S DISEASE
     Route: 048
  8. ULTRAM [Concomitant]
     Indication: HEADACHE
     Dosage: 1 TAB TWICE A DAY AS NEEDED
     Route: 048
  9. ULTRAM [Concomitant]
     Indication: ARTHRALGIA
  10. ZOFRAN [Concomitant]
     Indication: NAUSEA
     Dosage: 1 EVERY 12 HOURS AS NEEDED
     Route: 048
  11. ATIVAN [Concomitant]
     Dosage: 1/2 TO 1 TAB AS NEEDED
     Route: 048
  12. PRILOSEC [Concomitant]
     Route: 048
  13. ANUSOL-HC [Concomitant]
     Route: 054

REACTIONS (22)
  - White blood cell count decreased [Recovering/Resolving]
  - Gastroenteritis viral [Recovering/Resolving]
  - Escherichia urinary tract infection [Not Recovered/Not Resolved]
  - Cough [Not Recovered/Not Resolved]
  - Oropharyngeal pain [Recovering/Resolving]
  - Nasal congestion [Recovering/Resolving]
  - Fatigue [Recovering/Resolving]
  - Nasopharyngitis [Recovering/Resolving]
  - Throat irritation [Unknown]
  - Arthralgia [Unknown]
  - Abdominal pain [Unknown]
  - Rash [Unknown]
  - Chills [Unknown]
  - Nausea [Unknown]
  - Retching [Unknown]
  - Gingival bleeding [Unknown]
  - Contusion [Unknown]
  - Respiratory tract congestion [Unknown]
  - Constipation [Unknown]
  - Limb discomfort [Unknown]
  - Blood potassium decreased [Unknown]
  - Dysphonia [Unknown]
